FAERS Safety Report 5005586-4 (Version None)
Quarter: 2006Q2

REPORT INFORMATION
  Report Type: 
  Country: None (occurrence: None)
  Receive Date: 20060512
  Receipt Date: 20060428
  Transmission Date: 20061013
  Serious: Yes (Other)
  Sender: FDA-Public Use
  Company Number: GB200605000286

PATIENT
  Age: 59 Year
  Sex: Female

DRUGS (7)
  1. YENTREVE(DULOXETINE HYDROCHLORIDE) CAPSULE [Suspect]
     Indication: INCONTINENCE
     Dosage: 40 MG, 2/D, ORAL
     Route: 048
     Dates: start: 20060405, end: 20060408
  2. IMDUR [Concomitant]
  3. DILTIAZEM HYDROCHLORIDE [Concomitant]
  4. NICORANDIL (NICORANDIL) [Concomitant]
  5. PULMICORT [Concomitant]
  6. BRICANYL [Concomitant]
  7. OXIS (FORMOTEROL) [Concomitant]

REACTIONS (7)
  - ANOREXIA [None]
  - EYE DISORDER [None]
  - FATIGUE [None]
  - FEELING COLD [None]
  - HALLUCINATION [None]
  - HYPERHIDROSIS [None]
  - SOMNOLENCE [None]
